FAERS Safety Report 14865230 (Version 1)
Quarter: 2018Q2

REPORT INFORMATION
  Report Type: Spontaneous
  Country: US (occurrence: US)
  Receive Date: 20180508
  Receipt Date: 20180508
  Transmission Date: 20180711
  Serious: No
  Sender: FDA-Public Use
  Company Number: US-ALKERMES INC.-ALK-2017-003420

PATIENT
  Age: 62 Year
  Sex: Male

DRUGS (2)
  1. VIVITROL [Suspect]
     Active Substance: NALTREXONE
     Indication: ALCOHOLISM
     Dosage: 380 MG, QMO
     Route: 030
     Dates: start: 20170605
  2. OTHER THERAPEUTIC PRODUCTS [Concomitant]
     Active Substance: UNSPECIFIED INGREDIENT
     Indication: DEPRESSION
     Dosage: UNK
     Dates: start: 2017

REACTIONS (8)
  - Nightmare [Not Recovered/Not Resolved]
  - Injection site pain [Unknown]
  - Injection site mass [Recovered/Resolved]
  - Depression [Not Recovered/Not Resolved]
  - Injection site reaction [Unknown]
  - Injection site haemorrhage [Unknown]
  - Needle issue [Unknown]
  - Abnormal dreams [Not Recovered/Not Resolved]

NARRATIVE: CASE EVENT DATE: 20170605
